FAERS Safety Report 11178029 (Version 1)
Quarter: 2015Q2

REPORT INFORMATION
  Report Type: Spontaneous
  Country: US (occurrence: None)
  Receive Date: 20150515
  Receipt Date: 20150515
  Transmission Date: 20150821
  Serious: Yes (Hospitalization)
  Sender: FDA-Public Use
  Company Number: 2015004654

PATIENT
  Sex: Male
  Weight: 76 kg

DRUGS (3)
  1. CIMZIA [Suspect]
     Active Substance: CERTOLIZUMAB PEGOL
     Indication: CROHN^S DISEASE
     Route: 058
     Dates: end: 201501
  2. ZYPREXA [Concomitant]
     Active Substance: OLANZAPINE
  3. ESCITALOPRAM [Concomitant]
     Active Substance: ESCITALOPRAM OXALATE

REACTIONS (3)
  - Gallbladder pain [None]
  - Gastrooesophageal reflux disease [None]
  - Abdominal pain upper [None]
